FAERS Safety Report 9234838 (Version 2)
Quarter: 2013Q2

REPORT INFORMATION
  Report Type: Spontaneous
  Country: US (occurrence: US)
  Receive Date: 20130416
  Receipt Date: 20130501
  Transmission Date: 20140414
  Serious: No
  Sender: FDA-Public Use
  Company Number: US-B.I. PHARMACEUTICALS,INC./RIDGEFIELD-2013-BI-09028BP

PATIENT
  Age: 70 Year
  Sex: Male
  Weight: 55 kg

DRUGS (12)
  1. SPIRIVA [Suspect]
     Indication: CHRONIC OBSTRUCTIVE PULMONARY DISEASE
     Dosage: 18 MCG
     Route: 055
     Dates: start: 2010
  2. SPIRIVA [Suspect]
     Indication: EMPHYSEMA
  3. ADVAIR [Concomitant]
     Indication: CHRONIC OBSTRUCTIVE PULMONARY DISEASE
     Route: 055
  4. ADVAIR [Concomitant]
     Indication: EMPHYSEMA
  5. OXYGEN [Concomitant]
     Indication: CHRONIC OBSTRUCTIVE PULMONARY DISEASE
  6. OXYGEN [Concomitant]
     Indication: EMPHYSEMA
  7. PERCOCET [Concomitant]
     Indication: PAIN
     Dosage: 40 MG
     Route: 048
  8. VENTOLIN [Concomitant]
     Indication: CHRONIC OBSTRUCTIVE PULMONARY DISEASE
     Route: 055
  9. VENTOLIN [Concomitant]
     Indication: EMPHYSEMA
  10. METHADONE [Concomitant]
     Indication: PAIN
     Route: 048
  11. ALBUTEROL VIA NEBULIZER [Concomitant]
     Indication: CHRONIC OBSTRUCTIVE PULMONARY DISEASE
     Dosage: 7.5 MG
     Route: 055
  12. ALBUTEROL VIA NEBULIZER [Concomitant]
     Indication: EMPHYSEMA

REACTIONS (3)
  - Dyspnoea [Not Recovered/Not Resolved]
  - Pain [Not Recovered/Not Resolved]
  - Product quality issue [Recovered/Resolved]
